FAERS Safety Report 20611721 (Version 1)
Quarter: 2022Q1

REPORT INFORMATION
  Report Type: Spontaneous
  Country: DE (occurrence: DE)
  Receive Date: 20220318
  Receipt Date: 20220318
  Transmission Date: 20220424
  Serious: Yes (Other)
  Sender: FDA-Public Use
  Company Number: DE-EMBRYOTOX-202118833

PATIENT
  Sex: Male

DRUGS (3)
  1. CITALOPRAM HYDROBROMIDE [Suspect]
     Active Substance: CITALOPRAM HYDROBROMIDE
     Indication: Maternal exposure during pregnancy
     Dosage: 15 MG, QD  (0- 39.2 GESTATIONAL WEEK)
     Route: 064
     Dates: start: 20201114, end: 20210816
  2. METOPROLOL [Suspect]
     Active Substance: METOPROLOL
     Indication: Maternal exposure during pregnancy
     Dosage: 75 ((MG/D (3 X 25)) 3 SEPARATED DOSES (0 - 31.2. GESTATIONAL WEEK)
     Route: 064
     Dates: start: 20201114, end: 20210621
  3. METHYLDOPA [Concomitant]
     Active Substance: METHYLDOPA
     Indication: Maternal exposure during pregnancy
     Dosage: 625 (MG/D (BIS 375) )/ INITIAL 3X125MG DAILY, FROM WEEK 32+6 250-125-250MG DAILY (31.2. - 39.2. GEST
     Route: 064
     Dates: start: 20210621, end: 20210816

REACTIONS (4)
  - Temperature regulation disorder [Recovered/Resolved]
  - Hypoglycaemia neonatal [Recovered/Resolved]
  - Small for dates baby [Recovered/Resolved]
  - Foetal exposure during pregnancy [Unknown]

NARRATIVE: CASE EVENT DATE: 20210801
